FAERS Safety Report 17358305 (Version 1)
Quarter: 2020Q1

REPORT INFORMATION
  Report Type: Report from Study
  Country: US (occurrence: US)
  Receive Date: 20200201
  Receipt Date: 20200201
  Transmission Date: 20200409
  Serious: Yes (Other)
  Sender: FDA-Public Use
  Company Number: US-ROCHE-2531540

PATIENT
  Sex: Female

DRUGS (1)
  1. XOLAIR [Suspect]
     Active Substance: OMALIZUMAB
     Indication: ASTHMA
     Dosage: INJECT 375MG SUBCUTANEOUSLY EVERY 2 WEEK(S) ;ONGOING: UNKNOWN
     Route: 058

REACTIONS (20)
  - Keratitis [Unknown]
  - Blood potassium decreased [Unknown]
  - Vulvovaginal dryness [Unknown]
  - Fibromyalgia [Unknown]
  - Hypertension [Unknown]
  - Haemorrhage intracranial [Unknown]
  - Arthralgia [Unknown]
  - Leukoplakia [Unknown]
  - Nasal septum deviation [Unknown]
  - Insomnia [Unknown]
  - Blood triglycerides increased [Unknown]
  - Diabetes mellitus [Unknown]
  - Osteoarthritis [Unknown]
  - Ophthalmic herpes simplex [Unknown]
  - Blood cholesterol increased [Unknown]
  - Keratosis pilaris [Unknown]
  - Migraine [Unknown]
  - Nausea [Unknown]
  - Constipation [Unknown]
  - Exostosis [Unknown]
